FAERS Safety Report 6245999-6 (Version None)
Quarter: 2009Q2

REPORT INFORMATION
  Report Type: 
  Country: None (occurrence: None)
  Receive Date: 20090626
  Receipt Date: 20081008
  Transmission Date: 20091009
  Serious: No
  Sender: FDA-Public Use
  Company Number: A0752079A

PATIENT
  Age: 19 Year
  Sex: Female

DRUGS (1)
  1. IMITREX [Suspect]
     Indication: MIGRAINE
     Dosage: 50MG AS REQUIRED
     Route: 048

REACTIONS (3)
  - BEDRIDDEN [None]
  - DECREASED INTEREST [None]
  - THERAPEUTIC RESPONSE DECREASED [None]
